FAERS Safety Report 23634937 (Version 1)
Quarter: 2024Q1

REPORT INFORMATION
  Report Type: Spontaneous
  Country: NL (occurrence: NL)
  Receive Date: 20240315
  Receipt Date: 20240315
  Transmission Date: 20240410
  Serious: Yes (Disabling, Other)
  Sender: FDA-Public Use
  Company Number: None

PATIENT
  Age: 47 Year
  Sex: Female
  Weight: 70 kg

DRUGS (2)
  1. REMICADE [Suspect]
     Active Substance: INFLIXIMAB
     Indication: Colitis ulcerative
     Dosage: 1X PER MAAND
     Route: 041
     Dates: start: 20160117, end: 20170116
  2. AZATHIOPRINE [Concomitant]
     Active Substance: AZATHIOPRINE
     Indication: Colitis ulcerative
     Dosage: 1X PER DAG
     Dates: start: 20160303, end: 20160520

REACTIONS (4)
  - Polymyalgia rheumatica [Not Recovered/Not Resolved]
  - Enthesopathy [Not Recovered/Not Resolved]
  - Polyarthritis [Recovered/Resolved]
  - Off label use [Unknown]
